FAERS Safety Report 8977659 (Version 2)
Quarter: 2012Q4

REPORT INFORMATION
  Report Type: 
  Country: JP (occurrence: JP)
  Receive Date: 20121220
  Receipt Date: 20121227
  Transmission Date: 20130627
  Serious: Yes (Hospitalization)
  Sender: FDA-Public Use
  Company Number: JP-GLAXOSMITHKLINE-B0853712A

PATIENT
  Age: 57 Year
  Sex: Male

DRUGS (1)
  1. VALTREX [Suspect]
     Indication: KAPOSI^S VARICELLIFORM ERUPTION
     Route: 048
     Dates: start: 20121207, end: 20121211

REACTIONS (2)
  - Nephrotic syndrome [Not Recovered/Not Resolved]
  - Proteinuria [Not Recovered/Not Resolved]
